FAERS Safety Report 4801483-5 (Version None)
Quarter: 2005Q4

REPORT INFORMATION
  Report Type: 
  Country: None (occurrence: None)
  Receive Date: 20051018
  Receipt Date: 20051007
  Transmission Date: 20060501
  Serious: Yes (Hospitalization)
  Sender: FDA-Public Use
  Company Number: SE-JNJFOC-20051001690

PATIENT
  Age: 63 Year
  Sex: Male

DRUGS (7)
  1. REMICADE [Suspect]
     Indication: RHEUMATOID ARTHRITIS
     Route: 042
  2. FOLACIN [Concomitant]
     Route: 048
  3. FOLACIN [Concomitant]
     Route: 048
  4. METHOTREXATE [Concomitant]
     Route: 048
  5. BEHEPAN [Concomitant]
     Route: 048
  6. PREDNISOLONE [Concomitant]
     Route: 048
  7. CALCICHEW D3 [Concomitant]
     Route: 048

REACTIONS (1)
  - TONGUE NEOPLASM MALIGNANT STAGE UNSPECIFIED [None]
